FAERS Safety Report 7117997-1 (Version None)
Quarter: 2010Q4

REPORT INFORMATION
  Report Type: 
  Country: None (occurrence: None)
  Receive Date: 20101123
  Receipt Date: 20101116
  Transmission Date: 20110411
  Serious: Yes (Hospitalization)
  Sender: FDA-Public Use
  Company Number: US-US-EMD SERONO, INC.-232736J09USA

PATIENT
  Sex: Female

DRUGS (4)
  1. REBIF [Suspect]
     Indication: MULTIPLE SCLEROSIS
     Route: 058
     Dates: start: 20081114
  2. REBIF [Suspect]
     Route: 058
     Dates: start: 20090101
  3. DIOVAN HCT [Concomitant]
     Indication: HYPERTENSION
  4. ETODOLAC [Concomitant]
     Indication: PAIN

REACTIONS (5)
  - CONTUSION [None]
  - OVARIAN DISORDER [None]
  - POSTOPERATIVE WOUND COMPLICATION [None]
  - SMEAR CERVIX ABNORMAL [None]
  - URINARY TRACT INFECTION [None]
